FAERS Safety Report 13012244 (Version 1)
Quarter: 2016Q4

REPORT INFORMATION
  Report Type: Spontaneous
  Country: US (occurrence: US)
  Receive Date: 20161208
  Receipt Date: 20161208
  Transmission Date: 20170207
  Serious: No
  Sender: FDA-Public Use
  Company Number: None

PATIENT
  Age: 22 Year
  Sex: Female

DRUGS (7)
  1. LEVORA-28 [Concomitant]
  2. HYDROXYZ PAM [Concomitant]
     Active Substance: HYDROXYZINE PAMOATE
  3. OXYCODONE [Concomitant]
     Active Substance: OXYCODONE
  4. VIVITROL [Suspect]
     Active Substance: NALTREXONE
     Indication: DRUG DEPENDENCE
     Dosage: Q4W
     Route: 030
     Dates: start: 201611
  5. AMPHET/DEXTR [Concomitant]
  6. CLONIDINE. [Concomitant]
     Active Substance: CLONIDINE
  7. NAPROXIN [Concomitant]
     Active Substance: NAPROXEN

REACTIONS (1)
  - Anhedonia [None]

NARRATIVE: CASE EVENT DATE: 201611
